FAERS Safety Report 8246030-3 (Version None)
Quarter: 2012Q1

REPORT INFORMATION
  Report Type: 
  Country: None (occurrence: None)
  Receive Date: 20120330
  Receipt Date: 20120315
  Transmission Date: 20120608
  Serious: Yes (Hospitalization, Disabling)
  Sender: FDA-Public Use
  Company Number: FR-CELGENEUS-056-21880-11101604

PATIENT
  Sex: Male
  Weight: 93 kg

DRUGS (15)
  1. POLYETHYLENE GLYCOL [Concomitant]
     Indication: CONSTIPATION
     Route: 048
     Dates: start: 20110720
  2. SPASFON [Concomitant]
     Route: 041
  3. BACTRIM [Concomitant]
     Indication: PROPHYLAXIS
     Dosage: LOW DOSE
     Route: 048
     Dates: start: 20110801
  4. ALFUZOSIN HCL [Concomitant]
     Indication: PROSTATITIS
     Dosage: 10 MILLIGRAM
     Route: 048
     Dates: start: 20110726
  5. CYCLOPHOSPHAMIDE [Suspect]
     Indication: MULTIPLE MYELOMA
     Dosage: 3 G/M2
     Route: 065
     Dates: start: 20111010
  6. LOVENOX [Concomitant]
     Indication: PROPHYLAXIS
     Route: 058
     Dates: start: 20110720
  7. NEO RECORMON [Concomitant]
     Route: 058
     Dates: start: 20110805
  8. NEXIUM [Concomitant]
     Indication: PROPHYLAXIS
     Route: 048
     Dates: start: 20110720
  9. LEUCOVORIN CALCIUM [Concomitant]
     Indication: PROPHYLAXIS
     Route: 048
     Dates: start: 20110801
  10. REVLIMID [Suspect]
     Indication: MULTIPLE MYELOMA
     Dosage: 25 MILLIGRAM
     Route: 048
     Dates: start: 20110801, end: 20110925
  11. BORTEZOMIB [Suspect]
     Indication: MULTIPLE MYELOMA
     Dosage: 2.6 MILLIGRAM
     Route: 065
     Dates: start: 20110801, end: 20110922
  12. OXYCONTIN [Concomitant]
     Indication: PAIN
     Route: 048
     Dates: start: 20110803
  13. NICARDIPINE HYDROCHLORIDE [Concomitant]
     Dosage: 100 MILLIGRAM
     Route: 048
     Dates: start: 20110720
  14. DEXAMETHASONE [Suspect]
     Indication: MULTIPLE MYELOMA
     Dosage: 20 MILLIGRAM
     Route: 065
     Dates: start: 20110801, end: 20110923
  15. VALACYCLOVIR HYDROCHLORIDE [Concomitant]
     Indication: PROPHYLAXIS
     Dosage: 1000 MILLIGRAM
     Route: 048
     Dates: start: 20110801

REACTIONS (2)
  - LUNG DISORDER [None]
  - COLITIS [None]
